FAERS Safety Report 4755374-9 (Version None)
Quarter: 2005Q3

REPORT INFORMATION
  Report Type: 
  Country: None (occurrence: None)
  Receive Date: 20050826
  Receipt Date: 20050121
  Transmission Date: 20060218
  Serious: Yes (Hospitalization, Other)
  Sender: FDA-Public Use
  Company Number: USA-2002-0000683

PATIENT
  Age: 42 Year
  Sex: Female
  Weight: 77.1 kg

DRUGS (8)
  1. OXYCONTIN [Suspect]
     Indication: PAIN
     Dosage: ORAL
     Route: 048
     Dates: start: 19980626
  2. COCAINE (COCAINE) [Suspect]
  3. MARIJUANA (CANNABIS) [Suspect]
  4. MORPHINE SULFATE [Concomitant]
  5. RELAFEN [Concomitant]
  6. LITHIUM [Concomitant]
  7. TRIAVIL [Concomitant]
  8. VALIUM [Concomitant]

REACTIONS (16)
  - ABDOMINAL PAIN [None]
  - CHILLS [None]
  - COUGH [None]
  - DEPRESSED LEVEL OF CONSCIOUSNESS [None]
  - DRUG DEPENDENCE [None]
  - DRUG WITHDRAWAL SYNDROME [None]
  - FATIGUE [None]
  - INSOMNIA [None]
  - LIVER FUNCTION TEST ABNORMAL [None]
  - OVERDOSE [None]
  - POLYSUBSTANCE ABUSE [None]
  - PYREXIA [None]
  - SOMNOLENCE [None]
  - SPEECH DISORDER [None]
  - VOMITING [None]
  - WHEEZING [None]
